FAERS Safety Report 6528354-0 (Version None)
Quarter: 2010Q1

REPORT INFORMATION
  Report Type: 
  Country: None (occurrence: None)
  Receive Date: 20100106
  Receipt Date: 20100105
  Transmission Date: 20100710
  Serious: Yes (Life-Threatening, Hospitalization, Other)
  Sender: FDA-Public Use
  Company Number: PHHY2009GB57424

PATIENT
  Age: 39 Year
  Sex: Male

DRUGS (9)
  1. CLOZARIL [Suspect]
     Indication: SCHIZOPHRENIA
     Dosage: UNK
     Dates: start: 20031202
  2. CLOZARIL [Suspect]
     Dosage: 600 MG, DAILY
  3. CLOMIPRAMINE [Suspect]
     Dosage: 200MG DAILY
     Route: 048
     Dates: start: 20090217
  4. HYOSCINE (NCH) [Suspect]
     Dosage: UNK
     Route: 048
     Dates: start: 20090217
  5. LISINOPRIL [Suspect]
     Indication: HYPERTENSION
     Dosage: UNK
     Dates: start: 20090217
  6. METFORMIN HCL [Suspect]
     Dosage: UNK
     Route: 048
     Dates: start: 20090217
  7. OMEPRAZOLE [Suspect]
     Dosage: UNK
     Route: 048
     Dates: start: 20090217
  8. SIMVASTATIN [Suspect]
     Indication: BLOOD CHOLESTEROL INCREASED
     Dosage: UNK
     Route: 048
     Dates: start: 20090217
  9. SENNOSIDE [Concomitant]

REACTIONS (7)
  - AGITATION [None]
  - COMA SCALE ABNORMAL [None]
  - HAEMOGLOBIN DECREASED [None]
  - MECHANICAL VENTILATION [None]
  - NEUTROPHIL COUNT INCREASED [None]
  - OVERDOSE [None]
  - WHITE BLOOD CELL COUNT INCREASED [None]
